FAERS Safety Report 12628555 (Version 1)
Quarter: 2016Q3

REPORT INFORMATION
  Report Type: Spontaneous
  Country: US (occurrence: None)
  Receive Date: 20160805
  Receipt Date: 20160805
  Transmission Date: 20161109
  Serious: Yes (Hospitalization)
  Sender: FDA-Public Use
  Company Number: None

PATIENT
  Age: 43 Year
  Sex: Female
  Weight: 93 kg

DRUGS (10)
  1. FLEXERIL [Concomitant]
     Active Substance: CYCLOBENZAPRINE HYDROCHLORIDE
  2. EXANETIDE [Concomitant]
  3. LINAGLIPTIN [Concomitant]
     Active Substance: LINAGLIPTIN
  4. NEURONTIN [Concomitant]
     Active Substance: GABAPENTIN
  5. ACTOS [Concomitant]
     Active Substance: PIOGLITAZONE HYDROCHLORIDE
  6. LINACLOTIDE [Concomitant]
     Active Substance: LINACLOTIDE
  7. METFORMIN [Concomitant]
     Active Substance: METFORMIN HYDROCHLORIDE
  8. LIPITOR [Concomitant]
     Active Substance: ATORVASTATIN CALCIUM
  9. INVOKANA [Suspect]
     Active Substance: CANAGLIFLOZIN
     Indication: TYPE 2 DIABETES MELLITUS
     Route: 048
     Dates: start: 20160601, end: 20160801
  10. GLIMEPORODE [Concomitant]

REACTIONS (2)
  - Ketoacidosis [None]
  - Urosepsis [None]

NARRATIVE: CASE EVENT DATE: 20160801
